FAERS Safety Report 24588063 (Version 1)
Quarter: 2024Q4

REPORT INFORMATION
  Report Type: Spontaneous
  Country: SE (occurrence: SE)
  Receive Date: 20241107
  Receipt Date: 20241107
  Transmission Date: 20250114
  Serious: Yes (Life-Threatening, Other)
  Sender: BAXTER
  Company Number: None

PATIENT
  Age: 41 Year
  Sex: Male
  Weight: 98 kg

DRUGS (10)
  1. SEVOFLURANE [Suspect]
     Active Substance: SEVOFLURANE
     Indication: General anaesthesia
     Dosage: UNK
     Dates: start: 20241015, end: 20241015
  2. PROPOFOL LIPURO [Suspect]
     Active Substance: PROPOFOL
     Indication: General anaesthesia
     Dosage: UNK
     Route: 042
     Dates: start: 20241015, end: 20241015
  3. ROCURONIUM [Suspect]
     Active Substance: ROCURONIUM BROMIDE
     Indication: General anaesthesia
     Dosage: STRENGTH: 8.689 MG/ML
     Route: 042
     Dates: start: 20241015, end: 20241015
  4. BREVIBLOC [Concomitant]
     Active Substance: ESMOLOL HYDROCHLORIDE
     Dosage: ESMOLOL, STRENGTH: 8.9 MG/ML
     Route: 042
     Dates: start: 20241015, end: 20241015
  5. ALBUREX [Concomitant]
     Active Substance: ALBUMIN HUMAN
     Dosage: UNK
     Route: 042
     Dates: start: 20241015, end: 20241015
  6. NOVORAPID [Concomitant]
     Active Substance: INSULIN ASPART
     Dosage: UNK
     Route: 042
     Dates: start: 20241015
  7. NOREPINEPHRINE [Concomitant]
     Active Substance: NOREPINEPHRINE\NOREPINEPHRINE BITARTRATE
     Dosage: STRENGTH: 2 MG/ML, NORADRENALINE TARTRATE (MONOHYDRATE)
     Route: 042
     Dates: start: 20241015
  8. ESKETAMINE [Concomitant]
     Active Substance: ESKETAMINE
     Dosage: STRENGTH: 28.83 MG/ML, ESKETAMINE ORIFARM
     Route: 042
     Dates: start: 20241015, end: 20241015
  9. ALBUMIN HUMAN [Concomitant]
     Active Substance: ALBUMIN HUMAN
     Dosage: ALBUMIN BAXALTA
     Route: 042
     Dates: start: 20241015
  10. ADENOSINE [Concomitant]
     Active Substance: ADENOSINE
     Dosage: ADENOSIN LIFE MEDICAL
     Route: 042
     Dates: start: 20241015, end: 20241015

REACTIONS (2)
  - Carbon dioxide increased [Recovered/Resolved]
  - Hyperthermia malignant [Recovered/Resolved]

NARRATIVE: CASE EVENT DATE: 20241015
